FAERS Safety Report 14416957 (Version 1)
Quarter: 2018Q1

REPORT INFORMATION
  Report Type: Spontaneous
  Country: US (occurrence: US)
  Receive Date: 20180122
  Receipt Date: 20180122
  Transmission Date: 20180509
  Serious: No
  Sender: FDA-Public Use
  Company Number: US-PFIZER INC-2018026772

PATIENT
  Sex: Female

DRUGS (4)
  1. METOPROLOL. [Suspect]
     Active Substance: METOPROLOL
     Dosage: 1 DF, 1X/DAY (ONE TABLET ONCE A DAY BY MOUTH)
     Route: 048
  2. OMEPRAZOLE. [Suspect]
     Active Substance: OMEPRAZOLE
     Indication: DYSPEPSIA
     Dosage: 20 MG, 1X/DAY (20MG CAPSULE ONCE A DAY BY MOUTH)
     Route: 048
  3. PREMARIN [Suspect]
     Active Substance: ESTROGENS, CONJUGATED
     Indication: MOOD SWINGS
     Dosage: 0.625 MG, 1X/DAY (0.625MG TABLET ONCE A DAY BY MOUTH)
     Route: 048
  4. NITROFURANTOIN MONO/MAC [Suspect]
     Active Substance: NITROFURANTOIN\NITROFURANTOIN MONOHYDRATE

REACTIONS (1)
  - Somnolence [Unknown]
